FAERS Safety Report 23642792 (Version 1)
Quarter: 2024Q1

REPORT INFORMATION
  Report Type: Spontaneous
  Country: AU (occurrence: AU)
  Receive Date: 20240318
  Receipt Date: 20240318
  Transmission Date: 20240409
  Serious: Yes (Hospitalization, Other)
  Sender: FDA-Public Use
  Company Number: AU-PFIZER INC-202400064820

PATIENT
  Age: 84 Year
  Sex: Male

DRUGS (4)
  1. OXALIPLATIN [Suspect]
     Active Substance: OXALIPLATIN
     Indication: Colon cancer metastatic
     Dosage: TOTAL OF 750 MG, CYCLIC (5 CYCLES)
  2. FLUOROURACIL [Suspect]
     Active Substance: FLUOROURACIL
     Indication: Colon cancer metastatic
     Dosage: UNK, CYCLIC (5 CYCLES)
  3. LEUCOVORIN CALCIUM [Suspect]
     Active Substance: LEUCOVORIN CALCIUM
     Indication: Colon cancer metastatic
     Dosage: UNK, CYCLIC (5 CYCLES)
  4. CAPECITABINE [Suspect]
     Active Substance: CAPECITABINE
     Indication: Colon cancer metastatic
     Dosage: UNK, CYCLIC (5 CYCLES)

REACTIONS (3)
  - Guillain-Barre syndrome [Recovering/Resolving]
  - Bacteraemia [Recovered/Resolved]
  - Diarrhoea [Recovered/Resolved]
